FAERS Safety Report 14453502 (Version 2)
Quarter: 2018Q1

REPORT INFORMATION
  Report Type: Report from Study
  Country: None (occurrence: US)
  Receive Date: 20180129
  Receipt Date: 20180307
  Transmission Date: 20180509
  Serious: Yes (Hospitalization, Other)
  Sender: FDA-Public Use
  Company Number: US-ABBVIE-18P-163-2235140-00

PATIENT
  Age: 67 Year
  Sex: Male
  Weight: 79.5 kg

DRUGS (3)
  1. LUPRON DEPOT [Suspect]
     Active Substance: LEUPROLIDE ACETATE
     Indication: PROSTATE CANCER
     Dosage: UNK
     Route: 030
     Dates: start: 20150521, end: 20170727
  2. ORTERONEL [Concomitant]
     Active Substance: ORTERONEL
     Indication: PROSTATE CANCER
     Dosage: 300 MG, QD
     Route: 048
     Dates: start: 20150521
  3. ORTERONEL [Concomitant]
     Active Substance: ORTERONEL
     Dosage: 300 MG, QD
     Route: 048
     Dates: start: 20171026

REACTIONS (2)
  - Bladder cancer [Unknown]
  - Haematuria [Recovered/Resolved with Sequelae]

NARRATIVE: CASE EVENT DATE: 20171225
